FAERS Safety Report 8920095 (Version 1)
Quarter: 2012Q4

REPORT INFORMATION
  Report Type: 
  Country: US (occurrence: US)
  Receive Date: 20121121
  Receipt Date: 20121121
  Transmission Date: 20130627
  Serious: Yes (Other)
  Sender: FDA-Public Use
  Company Number: US-ASTRAZENECA-2012SE86364

PATIENT
  Age: 46 Year
  Sex: Male

DRUGS (6)
  1. NEXIUM [Suspect]
     Route: 048
     Dates: start: 20070716, end: 2011
  2. ENALAPRIL/HCTZ [Concomitant]
     Dosage: 10-25 MG
     Dates: start: 20070621
  3. TIZANIDINE [Concomitant]
     Route: 048
     Dates: start: 20110503
  4. METHADONE [Concomitant]
     Route: 048
     Dates: start: 20110513
  5. OXYCODONE [Concomitant]
     Indication: PAIN
     Route: 048
     Dates: start: 20110513
  6. LYRICA [Concomitant]
     Route: 048
     Dates: start: 20110528

REACTIONS (2)
  - Spinal compression fracture [Unknown]
  - Osteopenia [Unknown]
